FAERS Safety Report 22625991 (Version 1)
Quarter: 2023Q2

REPORT INFORMATION
  Report Type: Report from Study
  Country: FR (occurrence: FR)
  Receive Date: 20230621
  Receipt Date: 20230621
  Transmission Date: 20230722
  Serious: Yes (Hospitalization)
  Sender: FDA-Public Use
  Company Number: FR-ABBVIE-5299239

PATIENT
  Age: 81 Year
  Sex: Female
  Weight: 66 kg

DRUGS (3)
  1. UPADACITINIB [Suspect]
     Active Substance: UPADACITINIB
     Indication: Rheumatoid arthritis
     Dosage: 15 MILLIGRAM
     Route: 048
     Dates: start: 20210719, end: 20230612
  2. Severe acute respiratory syndrome coronavirus 2 vaccine [Concomitant]
     Indication: Prophylaxis
     Dates: start: 20210919, end: 20210919
  3. Severe acute respiratory syndrome coronavirus 2 vaccine [Concomitant]
     Indication: Prophylaxis
     Dates: start: 20210515, end: 20210515

REACTIONS (2)
  - Osteoarthritis [Recovered/Resolved]
  - Chondrocalcinosis [Recovered/Resolved]

NARRATIVE: CASE EVENT DATE: 20230515
